FAERS Safety Report 20919449 (Version 1)
Quarter: 2022Q2

REPORT INFORMATION
  Report Type: Spontaneous
  Country: US (occurrence: US)
  Receive Date: 20220606
  Receipt Date: 20220606
  Transmission Date: 20220721
  Serious: No
  Sender: FDA-Public Use
  Company Number: US-PFIZER INC-2020287206

PATIENT
  Age: 93 Year
  Sex: Female
  Weight: 58.957 kg

DRUGS (1)
  1. PREMARIN [Suspect]
     Active Substance: ESTROGENS, CONJUGATED
     Dosage: 0.625 MG, 1X/DAY(1 TAB ORAL EVERY DAY, 90 DAYS SUPPLY)
     Route: 048

REACTIONS (1)
  - COVID-19 [Unknown]
